FAERS Safety Report 10052983 (Version 2)
Quarter: 2014Q2

REPORT INFORMATION
  Report Type: Spontaneous
  Country: ES (occurrence: ES)
  Receive Date: 20140402
  Receipt Date: 20140429
  Transmission Date: 20141212
  Serious: Yes (Death)
  Sender: FDA-Public Use
  Company Number: ES-JNJFOC-20140400710

PATIENT
  Age: 86 Year
  Sex: Female

DRUGS (7)
  1. XARELTO [Suspect]
     Indication: CEREBROVASCULAR ACCIDENT PROPHYLAXIS
     Route: 048
     Dates: start: 20121119
  2. XARELTO [Suspect]
     Indication: ATRIAL FIBRILLATION
     Route: 048
     Dates: start: 20121119
  3. FUROSEMIDE SODIUM [Concomitant]
     Route: 048
  4. METFORMINA [Concomitant]
     Route: 065
  5. SERTRALINE [Concomitant]
     Route: 065
  6. DIGOXIN [Concomitant]
     Route: 065
  7. BISOPROLOL [Concomitant]
     Route: 065

REACTIONS (5)
  - Traumatic intracranial haemorrhage [Fatal]
  - Cognitive disorder [Fatal]
  - Contusion [Unknown]
  - Accident [Unknown]
  - Coagulation test abnormal [Unknown]
